FAERS Safety Report 5344049-3 (Version None)
Quarter: 2007Q2

REPORT INFORMATION
  Report Type: 
  Country: None (occurrence: None)
  Receive Date: 20070604
  Receipt Date: 20070530
  Transmission Date: 20071010
  Serious: Yes (Hospitalization, Other)
  Sender: FDA-Public Use
  Company Number: A0653511A

PATIENT
  Age: 78 Year
  Sex: Male

DRUGS (4)
  1. AVANDARYL [Suspect]
     Route: 048
     Dates: start: 20070101
  2. LIPITOR [Concomitant]
  3. ASPIRIN [Concomitant]
  4. MULTI-VITAMIN [Concomitant]

REACTIONS (1)
  - CEREBROVASCULAR ACCIDENT [None]
